FAERS Safety Report 4926287-4 (Version None)
Quarter: 2006Q1

REPORT INFORMATION
  Report Type: 
  Country: None (occurrence: None)
  Receive Date: 20060228
  Receipt Date: 20051229
  Transmission Date: 20060701
  Serious: No
  Sender: FDA-Public Use
  Company Number: US-GLAXOSMITHKLINE-A0587342A

PATIENT
  Age: 63 Year
  Sex: Male

DRUGS (11)
  1. LAMICTAL [Suspect]
     Indication: BIPOLAR DISORDER
     Dosage: 37MG PER DAY
     Route: 048
     Dates: start: 20051101
  2. TRILAFON [Concomitant]
  3. NEURONTIN [Concomitant]
  4. KLONOPIN [Concomitant]
  5. PRINIVIL [Concomitant]
  6. NORVASC [Concomitant]
  7. DIOVAN [Concomitant]
  8. CARDIZEM [Concomitant]
  9. LASIX [Concomitant]
  10. ZETIA [Concomitant]
  11. TRICOR [Concomitant]

REACTIONS (2)
  - ABDOMINAL PAIN [None]
  - INFLUENZA LIKE ILLNESS [None]
